FAERS Safety Report 20323579 (Version 2)
Quarter: 2022Q2

REPORT INFORMATION
  Report Type: Report from Study
  Country: IT (occurrence: IT)
  Receive Date: 20220111
  Receipt Date: 20220615
  Transmission Date: 20220720
  Serious: Yes (Hospitalization, Other)
  Sender: FDA-Public Use
  Company Number: IT-CELGENE-ITA-20211208801

PATIENT
  Age: 54 Year
  Sex: Male

DRUGS (6)
  1. AZACITIDINE [Suspect]
     Active Substance: AZACITIDINE
     Indication: Acute myeloid leukaemia
     Dosage: 10.7143 MILLIGRAM/SQ. METER
     Route: 041
  2. AZACITIDINE [Suspect]
     Active Substance: AZACITIDINE
     Dosage: 75MG PER SQUARE METER OF BODY-SURFACE AREA FROM DAY 1-7 OF 28 DAYS CYCLE
     Route: 058
  3. VENETOCLAX [Suspect]
     Active Substance: VENETOCLAX
     Indication: Acute myeloid leukaemia
     Dosage: 400 MILLIGRAM/SQ. METER
     Route: 048
  4. VENETOCLAX [Suspect]
     Active Substance: VENETOCLAX
     Dosage: 100 MILLIGRAM, QD ON DAY 1
     Route: 048
  5. VENETOCLAX [Suspect]
     Active Substance: VENETOCLAX
     Dosage: 200 MILLIGRAM, QD ON DAY 2
     Route: 048
  6. VENETOCLAX [Suspect]
     Active Substance: VENETOCLAX
     Dosage: 400 MILLIGRAM, QD FROM DAY 3
     Route: 048

REACTIONS (4)
  - General physical health deterioration [Unknown]
  - Condition aggravated [Unknown]
  - Febrile neutropenia [Unknown]
  - Off label use [Unknown]
